FAERS Safety Report 21980202 (Version 2)
Quarter: 2023Q1

REPORT INFORMATION
  Report Type: Report from Study
  Country: US (occurrence: US)
  Receive Date: 20230210
  Receipt Date: 20230224
  Transmission Date: 20230418
  Serious: No
  Sender: FDA-Public Use
  Company Number: US-002147023-NVSC2023US026922

PATIENT
  Sex: Female

DRUGS (1)
  1. COSENTYX [Suspect]
     Active Substance: SECUKINUMAB
     Indication: Axial spondyloarthritis
     Route: 065

REACTIONS (4)
  - Oropharyngeal pain [Unknown]
  - Paraesthesia oral [Unknown]
  - Burning sensation [Unknown]
  - Pain in extremity [Unknown]
